FAERS Safety Report 9346280 (Version 3)
Quarter: 2013Q4

REPORT INFORMATION
  Report Type: Report from Study
  Country: JP (occurrence: JP)
  Receive Date: 20130613
  Receipt Date: 20131118
  Transmission Date: 20140711
  Serious: Yes (Life-Threatening, Other)
  Sender: FDA-Public Use
  Company Number: JP-SHIRE-ALL1-2013-03937

PATIENT
  Age: 65 Year
  Sex: Male

DRUGS (16)
  1. 405 (LANTHANUM CARBONATE) [Suspect]
     Indication: HYPERPHOSPHATAEMIA
     Dosage: 750 MG, UNKNOWN
     Route: 048
     Dates: start: 20100407, end: 20121002
  2. CALTAN [Concomitant]
     Indication: HYPERPHOSPHATAEMIA
     Dosage: 3 G, UNKNOWN
     Route: 048
     Dates: start: 20090916, end: 20110110
  3. CALTAN [Concomitant]
     Dosage: 3 G, UNKNOWN
     Route: 048
     Dates: start: 20110322, end: 20110330
  4. CALTAN [Concomitant]
     Dosage: 4.5 G, UNKNOWN
     Route: 048
     Dates: start: 20110331, end: 20110404
  5. CALTAN [Concomitant]
     Dosage: 3 G, UNKNOWN
     Route: 048
     Dates: start: 20110405, end: 20110822
  6. CALTAN [Concomitant]
     Dosage: 1.5 G, UNKNOWN
     Route: 048
     Dates: start: 20110823, end: 20121002
  7. ONEALFA [Concomitant]
     Indication: PRODUCT USED FOR UNKNOWN INDICATION
     Dosage: 0.25 ?G, UNKNOWN
     Route: 048
     Dates: start: 20090518, end: 20100823
  8. ONEALFA [Concomitant]
     Dosage: 0.5 ?G, UNKNOWN
     Route: 048
     Dates: start: 20100824, end: 20111003
  9. ONEALFA [Concomitant]
     Dosage: 0.25 ?G, UNKNOWN
     Route: 048
     Dates: start: 20111004, end: 20111128
  10. ONEALFA [Concomitant]
     Dosage: 0.5 ?G, UNKNOWN
     Route: 048
     Dates: start: 20111129, end: 20121001
  11. ONEALFA [Concomitant]
     Dosage: 0.25 ?G, UNKNOWN
     Route: 048
     Dates: start: 20121002
  12. LIPITOR [Concomitant]
     Indication: PRODUCT USED FOR UNKNOWN INDICATION
     Dosage: 10 ?G, UNKNOWN
     Route: 048
  13. OLMETEC [Concomitant]
     Indication: PRODUCT USED FOR UNKNOWN INDICATION
     Dosage: 20 MG, OTHER(ONLY IN ABSENCE OF DIALYSIS)
     Route: 048
     Dates: end: 20100907
  14. NOVORAPID [Concomitant]
     Indication: PRODUCT USED FOR UNKNOWN INDICATION
     Dosage: 24 IU, UNKNOWN
     Route: 058
  15. EPOGIN [Concomitant]
     Indication: PRODUCT USED FOR UNKNOWN INDICATION
     Dosage: 3000 IU, UNKNOWN
     Route: 042
     Dates: start: 20100422
  16. NOVORAPID MIX [Concomitant]
     Indication: PRODUCT USED FOR UNKNOWN INDICATION
     Dosage: UNK, UNKNOWN
     Route: 065

REACTIONS (2)
  - Colon cancer [Not Recovered/Not Resolved]
  - Metastases to liver [Not Recovered/Not Resolved]
